FAERS Safety Report 9631972 (Version 2)
Quarter: 2013Q4

REPORT INFORMATION
  Report Type: Spontaneous
  Country: US (occurrence: US)
  Receive Date: 20131018
  Receipt Date: 20131231
  Transmission Date: 20140711
  Serious: Yes (Congenital Anomaly)
  Sender: FDA-Public Use
  Company Number: US-BAYER-2013-121731

PATIENT
  Sex: 0

DRUGS (1)
  1. MIRENA [Suspect]
     Dosage: UNK
     Route: 064

REACTIONS (4)
  - Congenital brain damage [None]
  - Anencephaly [None]
  - Skull malformation [None]
  - Foetal exposure during pregnancy [None]
